FAERS Safety Report 10804045 (Version 12)
Quarter: 2016Q2

REPORT INFORMATION
  Report Type: Report from Study
  Country: IQ (occurrence: IQ)
  Receive Date: 20150217
  Receipt Date: 20160630
  Transmission Date: 20160815
  Serious: Yes (Other)
  Sender: FDA-Public Use
  Company Number: PHHY2014IQ125732

PATIENT
  Age: 48 Year
  Sex: Female

DRUGS (1)
  1. TASIGNA [Suspect]
     Active Substance: NILOTINIB
     Indication: CHRONIC MYELOID LEUKAEMIA
     Dosage: 800 MG, QD
     Route: 048
     Dates: start: 20140827

REACTIONS (22)
  - Menstrual disorder [Not Recovered/Not Resolved]
  - Headache [Not Recovered/Not Resolved]
  - Arthralgia [Recovering/Resolving]
  - Incorrect drug administration duration [Not Recovered/Not Resolved]
  - Hypertension [Recovering/Resolving]
  - Menstruation irregular [Unknown]
  - Fatigue [Recovering/Resolving]
  - Hyperglycaemia [Recovered/Resolved]
  - Metrorrhagia [Unknown]
  - Upper limb fracture [Unknown]
  - Fall [Unknown]
  - Back pain [Not Recovered/Not Resolved]
  - Dizziness [Not Recovered/Not Resolved]
  - Abdominal distension [Recovering/Resolving]
  - Hypotension [Recovered/Resolved]
  - Vaginal haemorrhage [Recovering/Resolving]
  - Rash [Recovering/Resolving]
  - Chest pain [Recovering/Resolving]
  - Hypersensitivity [Recovering/Resolving]
  - Muscle spasms [Recovering/Resolving]
  - Influenza [Not Recovered/Not Resolved]
  - Pain in extremity [Not Recovered/Not Resolved]

NARRATIVE: CASE EVENT DATE: 201408
